FAERS Safety Report 10377750 (Version 1)
Quarter: 2014Q3

REPORT INFORMATION
  Report Type: Report from Study
  Country: MX (occurrence: MX)
  Receive Date: 20140812
  Receipt Date: 20140812
  Transmission Date: 20150326
  Serious: Yes (Other)
  Sender: FDA-Public Use
  Company Number: PHHY2014MX099151

PATIENT
  Age: 79 Year
  Sex: Male

DRUGS (8)
  1. MEMANTINE [Concomitant]
     Active Substance: MEMANTINE
     Dosage: 2 UKN, DAILY
     Dates: start: 2009
  2. CORTISONE [Concomitant]
     Active Substance: CORTISONE\HYDROCORTISONE
     Indication: COORDINATION ABNORMAL
     Dosage: 2 UKN, DAILY
     Dates: start: 2011
  3. TAFIL [Concomitant]
     Active Substance: ALPRAZOLAM
     Indication: INSOMNIA
     Dosage: 0.5 UKN, DAILY
  4. STALEVO [Suspect]
     Active Substance: CARBIDOPA\ENTACAPONE\LEVODOPA
     Dosage: 2 DF, DAILY
     Route: 048
  5. METAMUCIL [Concomitant]
     Active Substance: PLANTAGO SEED
     Indication: CONSTIPATION
     Dosage: UNK UKN, UNK
  6. STALEVO [Suspect]
     Active Substance: CARBIDOPA\ENTACAPONE\LEVODOPA
     Indication: PARKINSON^S DISEASE
     Dosage: 3 DF, DAILY
     Route: 048
  7. EUTIROX [Concomitant]
     Active Substance: LEVOTHYROXINE SODIUM
     Dosage: 1 UKN, DAILY
     Dates: start: 2009
  8. ASPIRIN. [Concomitant]
     Active Substance: ASPIRIN
     Dosage: 1 UKN, DAILY
     Dates: start: 2011

REACTIONS (10)
  - Impatience [Unknown]
  - Memory impairment [Unknown]
  - Dementia [Not Recovered/Not Resolved]
  - Fall [Recovered/Resolved]
  - Depression [Not Recovered/Not Resolved]
  - Mood altered [Not Recovered/Not Resolved]
  - Hypokinesia [Not Recovered/Not Resolved]
  - Nervousness [Unknown]
  - Head injury [Unknown]
  - Hypersomnia [Not Recovered/Not Resolved]
